FAERS Safety Report 13664617 (Version 1)
Quarter: 2017Q2

REPORT INFORMATION
  Report Type: Spontaneous
  Country: JP (occurrence: JP)
  Receive Date: 20170619
  Receipt Date: 20170619
  Transmission Date: 20170830
  Serious: Yes (Other)
  Sender: FDA-Public Use
  Company Number: JP-GLAXOSMITHKLINE-JP2015JPN180179

PATIENT
  Sex: Female

DRUGS (3)
  1. VALPROATE SODIUM. [Concomitant]
     Active Substance: VALPROATE SODIUM
     Route: 064
  2. LAMICTAL [Suspect]
     Active Substance: LAMOTRIGINE
     Dosage: UNK
     Route: 064
  3. LAMICTAL [Suspect]
     Active Substance: LAMOTRIGINE
     Dosage: UNK
     Route: 063

REACTIONS (10)
  - Jaundice neonatal [Recovered/Resolved]
  - Agitation neonatal [Unknown]
  - Exposure during breast feeding [Unknown]
  - Fever neonatal [Recovered/Resolved]
  - Blood lactate dehydrogenase increased [Unknown]
  - Anticonvulsant drug level above therapeutic [Unknown]
  - Blood creatine phosphokinase increased [Unknown]
  - Irritability [Unknown]
  - Foetal exposure during pregnancy [Unknown]
  - Aspartate aminotransferase increased [Unknown]
